FAERS Safety Report 21586108 (Version 2)
Quarter: 2022Q4

REPORT INFORMATION
  Report Type: Spontaneous
  Country: GB (occurrence: GB)
  Receive Date: 20221112
  Receipt Date: 20221123
  Transmission Date: 20230112
  Serious: Yes (Other)
  Sender: FDA-Public Use
  Company Number: GB-CELLTRION INC.-2022GB018731

PATIENT

DRUGS (1)
  1. INFLIXIMAB [Suspect]
     Active Substance: INFLIXIMAB
     Indication: Gastrointestinal disorder
     Dosage: Q2WEEKS (EOW)
     Dates: start: 20220118

REACTIONS (3)
  - COVID-19 [Unknown]
  - Therapy interrupted [Unknown]
  - Product distribution issue [Unknown]
